FAERS Safety Report 6395045-9 (Version None)
Quarter: 2009Q4

REPORT INFORMATION
  Report Type: 
  Country: None (occurrence: None)
  Receive Date: 20091009
  Receipt Date: 20090929
  Transmission Date: 20100525
  Serious: Yes (Hospitalization, Other)
  Sender: FDA-Public Use
  Company Number: US-PFIZER INC-2009279972

PATIENT
  Sex: Female

DRUGS (14)
  1. AMLODIPINE BESILATE [Suspect]
     Indication: HYPERTENSION
     Route: 048
  2. BENICAR [Suspect]
     Indication: HYPERTENSION
     Dosage: 40 MG, 1X/DAY
     Route: 048
     Dates: start: 20070430
  3. CRESTOR [Concomitant]
     Indication: HYPERCHOLESTEROLAEMIA
     Dosage: 10 MG, 1X/DAY
  4. DIGOXIN [Concomitant]
     Dosage: 0.125 MG, 1X/DAY
  5. BISOPROLOL [Concomitant]
     Indication: HYPERTENSION
     Dosage: 5 MG, 1X/DAY
  6. WARFARIN [Concomitant]
     Dosage: 2.5 MG,2 ON MONDAY, 1 QD ON OTHER DAYS)
  7. FOLIC ACID [Concomitant]
     Dosage: 400 MCG, 2X/DAY
  8. CALCIUM WITH VITAMIN D [Concomitant]
     Indication: OSTEOPENIA
     Dosage: 600 MG, 2X/DAY
  9. HYDROCHLOROTHIAZIDE [Concomitant]
     Indication: FLUID RETENTION
     Dosage: 25 MG, 1X/DAY
  10. PEPCID [Concomitant]
     Dosage: 20 MG, QPM
  11. DARVOCET [Concomitant]
     Indication: MIGRAINE
     Dosage: 100-600 MG, AS NEEDED
  12. EXCEDRIN (MIGRAINE) [Concomitant]
     Indication: MIGRAINE
     Dosage: UNK
  13. AMOXICILLIN [Concomitant]
     Indication: ANTIBIOTIC PROPHYLAXIS
     Dosage: 500 MG, AS NEEDED
  14. ACETYLSALICYLIC ACID [Concomitant]
     Dosage: 81 MG, 1X/DAY

REACTIONS (5)
  - CARDIAC DISORDER [None]
  - CARDIOVASCULAR DISORDER [None]
  - DIZZINESS [None]
  - OEDEMA PERIPHERAL [None]
  - SCIATICA [None]
